FAERS Safety Report 18420500 (Version 1)
Quarter: 2020Q4

REPORT INFORMATION
  Report Type: Spontaneous
  Country: US (occurrence: US)
  Receive Date: 20201023
  Receipt Date: 20201023
  Transmission Date: 20210114
  Serious: No
  Sender: FDA-Public Use
  Company Number: None

PATIENT
  Age: 31 Year
  Sex: Female

DRUGS (2)
  1. AMLOD/BENAZAP [Concomitant]
  2. AMBRISENTAN [Suspect]
     Active Substance: AMBRISENTAN
     Indication: RESPIRATORY TRACT MALFORMATION

REACTIONS (2)
  - Therapy interrupted [None]
  - Dyspnoea [None]

NARRATIVE: CASE EVENT DATE: 20201008
